FAERS Safety Report 20956107 (Version 1)
Quarter: 2022Q2

REPORT INFORMATION
  Report Type: Spontaneous
  Country: US (occurrence: None)
  Receive Date: 20220614
  Receipt Date: 20220614
  Transmission Date: 20220721
  Serious: No
  Sender: FDA-Public Use
  Company Number: None

PATIENT
  Age: 91 Year
  Sex: Male

DRUGS (2)
  1. APIXABAN [Suspect]
     Active Substance: APIXABAN
     Indication: Atrial fibrillation
     Dosage: FREQUENCY : TWICE A DAY;?
     Route: 048
     Dates: start: 20211129
  2. ASPIRIN [Suspect]
     Active Substance: ASPIRIN
     Indication: Peripheral vascular disorder
     Dosage: FREQUENCY : DAILY;?
     Route: 048
     Dates: start: 20130920, end: 20220605

REACTIONS (8)
  - Haematuria [None]
  - Pseudomonas infection [None]
  - Asymptomatic bacteriuria [None]
  - Renal cyst [None]
  - Haemangioma [None]
  - Fall [None]
  - Atrial fibrillation [None]
  - Aortic stenosis [None]

NARRATIVE: CASE EVENT DATE: 20220605
